FAERS Safety Report 6664612-7 (Version None)
Quarter: 2010Q1

REPORT INFORMATION
  Report Type: 
  Country: None (occurrence: None)
  Receive Date: 20100330
  Receipt Date: 20091130
  Transmission Date: 20100710
  Serious: Yes (Death)
  Sender: FDA-Public Use
  Company Number: 6056352

PATIENT
  Age: 78 Year
  Sex: Female

DRUGS (12)
  1. LEVOTHYROXINE SODIUM [Suspect]
     Indication: HYPOTHYROIDISM
     Dosage: 1 DOSAGE FORMS (1 DOSAGE FORMS, 1 IN 1 D)
     Route: 048
     Dates: start: 19930101, end: 20091027
  2. AUGMENTIN (AMOXICILLINE, CLAVULANIC ACID) [Suspect]
     Indication: ERYSIPELAS
     Dosage: 1 G/DAY FOR 10 DAYS PER MONTH
     Route: 048
     Dates: start: 20090804, end: 20091007
  3. INEXIUM (40 MG, GASTRO-RESISTANT TABLET) (ESOMEPRAZOLE MAGNESIUM) [Suspect]
     Indication: GASTRITIS
     Dosage: 1 DOSGAGE FORMS (1 DOSAGE FORMS, 1 IN 1 D)
     Route: 048
     Dates: start: 20080801, end: 20091027
  4. PREVISCAN (20 MG, TABLET) (PENTOXIFYLLINE) [Suspect]
     Indication: ATRIAL FIBRILLATION
     Dosage: 5 MG (5 MG, 1 IN 1 D)
     Route: 048
     Dates: start: 19930101, end: 20091027
  5. RAMIPRIL [Suspect]
     Indication: HYPERTENSION
     Dosage: 7.5 MG (7.5 MG,1 IN 1 D)
     Route: 048
     Dates: start: 20090403, end: 20091007
  6. CORDARONE [Suspect]
     Indication: ATRIAL FIBRILLATION
     Dosage: 200 MG 5/7 DAYS
     Route: 048
     Dates: start: 19941101, end: 20091027
  7. LASIX [Suspect]
     Indication: OEDEMA DUE TO CARDIAC DISEASE
     Dosage: 80 MG (40 MG, 2 IN 1 D)
     Dates: start: 20080101, end: 20091007
  8. KALEORID LP (600 MG, MODIFIED-RELEASE TABLET) (POTASSIUM CHLORIDE) [Suspect]
     Indication: HYPOKALAEMIA
     Dosage: 1 DOSAGE FORMS (1 DOSAGE FORMS, 1 IN 1 D)
     Route: 048
     Dates: start: 20080101, end: 20091007
  9. FOLIC ACID [Suspect]
     Indication: ANAEMIA
     Dosage: 1 DOSAGE FORMS (1 DOSAGE FORMS, 1 IN 1 D)
     Route: 048
     Dates: end: 20091007
  10. DAFALGAN (500 MG, CAPSULE) (PARACETAMOL) [Suspect]
     Indication: ANALGESIC INTERVENTION SUPPORTIVE THERAPY
     Dosage: ON REQUEST
     Route: 048
     Dates: start: 19900101, end: 20091007
  11. LORAZEPAM [Suspect]
     Indication: ANXIETY
     Dosage: 1 DOSAGE FORMS (1 DOSAGE FORMS, 1 IN 1 D)
     Route: 048
     Dates: start: 19910101, end: 20091007
  12. LANTUS [Suspect]
     Indication: INSULIN-REQUIRING TYPE 2 DIABETES MELLITUS
     Dosage: 22 IU (22 IU, 1 IN 1 D)
     Dates: start: 20040101, end: 20091024

REACTIONS (15)
  - ANAEMIA [None]
  - ANXIETY [None]
  - ATRIAL FIBRILLATION [None]
  - CARDIAC DISORDER [None]
  - CARDIAC FAILURE [None]
  - CLOSTRIDIUM DIFFICILE COLITIS [None]
  - DEHYDRATION [None]
  - ERYSIPELAS [None]
  - GASTRITIS [None]
  - HYPERTENSION [None]
  - HYPOKALAEMIA [None]
  - HYPONATRAEMIA [None]
  - INSULIN-REQUIRING TYPE 2 DIABETES MELLITUS [None]
  - OEDEMA [None]
  - RENAL FAILURE ACUTE [None]
